FAERS Safety Report 8796138 (Version 2)
Quarter: 2012Q4

REPORT INFORMATION
  Report Type: 
  Country: US (occurrence: US)
  Receive Date: 20120920
  Receipt Date: 20121026
  Transmission Date: 20130627
  Serious: Yes (Hospitalization)
  Sender: FDA-Public Use
  Company Number: US-BRISTOL-MYERS SQUIBB COMPANY-16951493

PATIENT
  Age: 54 Year
  Sex: Female
  Weight: 95 kg

DRUGS (8)
  1. ORENCIA [Suspect]
     Indication: RHEUMATOID ARTHRITIS
     Dosage: Last dose; 01APR2012
     Route: 042
     Dates: start: 20110713
  2. METHOTREXATE [Suspect]
     Route: 058
  3. PREDNISONE [Suspect]
     Route: 048
  4. FOLIC ACID [Concomitant]
  5. CELEBREX [Concomitant]
  6. ZOLOFT [Concomitant]
  7. LISINOPRIL [Concomitant]
     Route: 048
  8. AMITRIPTYLINE [Concomitant]

REACTIONS (3)
  - Bone disorder [Unknown]
  - Condition aggravated [Unknown]
  - Urinary tract infection [Unknown]
